FAERS Safety Report 17284764 (Version 1)
Quarter: 2020Q1

REPORT INFORMATION
  Report Type: Spontaneous
  Country: JP (occurrence: JP)
  Receive Date: 20200117
  Receipt Date: 20200117
  Transmission Date: 20200409
  Serious: Yes (Other)
  Sender: FDA-Public Use
  Company Number: JP-VIIV HEALTHCARE LIMITED-JP2020GSK005254

PATIENT
  Age: 40 Year
  Sex: Male

DRUGS (10)
  1. LAMIVUDINE AND ZIDOVUDINE [Suspect]
     Active Substance: LAMIVUDINE\ZIDOVUDINE
     Indication: HIV INFECTION
     Dosage: UNK
  2. LAMIVUDINE AND ZIDOVUDINE [Suspect]
     Active Substance: LAMIVUDINE\ZIDOVUDINE
     Indication: HEPATITIS B
  3. INDINAVIR [Concomitant]
     Active Substance: INDINAVIR
     Indication: HEPATITIS B
  4. LAMIVUDINE. [Suspect]
     Active Substance: LAMIVUDINE
     Indication: HIV INFECTION
     Dosage: 300 MG, QD
     Dates: start: 2002
  5. ZIDOVUDINE. [Concomitant]
     Active Substance: ZIDOVUDINE
     Indication: HEPATITIS B
  6. INDINAVIR [Concomitant]
     Active Substance: INDINAVIR
     Indication: HIV INFECTION
     Dosage: UNK
  7. LAMIVUDINE. [Suspect]
     Active Substance: LAMIVUDINE
     Indication: HEPATITIS B
  8. ZIDOVUDINE. [Concomitant]
     Active Substance: ZIDOVUDINE
     Indication: HIV INFECTION
     Dosage: 200 MG, QD
     Dates: start: 2002
  9. NELFINAVIR [Concomitant]
     Active Substance: NELFINAVIR
     Indication: HIV INFECTION
     Dosage: 2250 MG, QD
     Dates: start: 2002
  10. NELFINAVIR [Concomitant]
     Active Substance: NELFINAVIR
     Indication: HEPATITIS B

REACTIONS (3)
  - Viral mutation identified [Unknown]
  - Pathogen resistance [Unknown]
  - Drug resistance [Unknown]
